FAERS Safety Report 7473054-6 (Version None)
Quarter: 2011Q2

REPORT INFORMATION
  Report Type: 
  Country: None (occurrence: None)
  Receive Date: 20110511
  Receipt Date: 20110429
  Transmission Date: 20111010
  Serious: No
  Sender: FDA-Public Use
  Company Number: US-ELI_LILLY_AND_COMPANY-US201105000468

PATIENT
  Sex: Female

DRUGS (4)
  1. LAMICTAL [Concomitant]
  2. CYMBALTA [Suspect]
     Dosage: UNK, UNKNOWN
  3. CYMBALTA [Suspect]
     Indication: DEPRESSION
     Dosage: 120 MG, UNK
  4. REMERON [Concomitant]

REACTIONS (1)
  - HEPATIC ENZYME INCREASED [None]
